FAERS Safety Report 18946280 (Version 7)
Quarter: 2024Q2

REPORT INFORMATION
  Report Type: Spontaneous
  Country: CA (occurrence: CA)
  Receive Date: 20210226
  Receipt Date: 20240613
  Transmission Date: 20240716
  Serious: Yes (Other)
  Sender: FDA-Public Use
  Company Number: CA-NAPPMUNDI-CAN-2021-0012217

PATIENT
  Age: 63 Year
  Sex: Female

DRUGS (38)
  1. HYDROMORPHONE HYDROCHLORIDE [Suspect]
     Active Substance: HYDROMORPHONE HYDROCHLORIDE
     Indication: Migraine
     Dosage: 2 MG, [2 EVERY 1 DAYS]
     Route: 065
  2. HYDROMORPHONE HYDROCHLORIDE [Suspect]
     Active Substance: HYDROMORPHONE HYDROCHLORIDE
     Dosage: 2 MG, [2 EVERY 1 DAYS]
     Route: 048
  3. HYDROMORPHONE HYDROCHLORIDE [Suspect]
     Active Substance: HYDROMORPHONE HYDROCHLORIDE
     Dosage: 4 MILLIGRAM, DAILY
     Route: 065
  4. OXYCODONE AND ACETAMINOPHEN [Suspect]
     Active Substance: ACETAMINOPHEN\OXYCODONE HYDROCHLORIDE
     Indication: Migraine
     Dosage: UNK
     Route: 065
  5. MAGNESIUM [Suspect]
     Active Substance: MAGNESIUM
     Indication: Migraine
     Dosage: UNK
     Route: 065
  6. AIMOVIG [Suspect]
     Active Substance: ERENUMAB-AOOE
     Indication: Migraine
     Dosage: UNK
     Route: 065
  7. AIMOVIG [Suspect]
     Active Substance: ERENUMAB-AOOE
     Dosage: UNK
     Route: 042
  8. ELETRIPTAN HYDROBROMIDE [Suspect]
     Active Substance: ELETRIPTAN HYDROBROMIDE
     Indication: Migraine
     Dosage: UNK
     Route: 065
  9. ELETRIPTAN HYDROBROMIDE [Suspect]
     Active Substance: ELETRIPTAN HYDROBROMIDE
     Indication: Product used for unknown indication
  10. METOPROLOL [Suspect]
     Active Substance: METOPROLOL
     Indication: Migraine
     Dosage: 25 MILLIGRAM, (2 EVERY 1 DAYS)
     Route: 048
  11. PROPRANOLOL [Suspect]
     Active Substance: PROPRANOLOL HYDROCHLORIDE
     Indication: Migraine
     Dosage: 160 MG, [1 EVERY 1 DAYS]
     Route: 065
  12. PROPRANOLOL [Suspect]
     Active Substance: PROPRANOLOL HYDROCHLORIDE
     Indication: Product used for unknown indication
  13. TOPIRAMATE [Suspect]
     Active Substance: TOPIRAMATE
     Indication: Migraine
     Dosage: UNK
     Route: 065
  14. VERAPAMIL HCL [Suspect]
     Active Substance: VERAPAMIL HYDROCHLORIDE
     Indication: Migraine
     Dosage: UNK
     Route: 065
  15. ACETAMINOPHEN [Concomitant]
     Active Substance: ACETAMINOPHEN
     Indication: Arthritis
     Dosage: 1000 MILLIGRAM, (4 EVERY 1 DAYS)
     Route: 065
  16. ACETAMINOPHEN [Concomitant]
     Active Substance: ACETAMINOPHEN
     Dosage: UNK
     Route: 065
  17. AMITRIPTYLINE [Concomitant]
     Active Substance: AMITRIPTYLINE
     Indication: Migraine prophylaxis
     Dosage: 30 MG, UNK
     Route: 065
  18. CALCIUM [Concomitant]
     Active Substance: CALCIUM
     Indication: Product used for unknown indication
     Dosage: UNK
     Route: 065
  19. HYDROCHLOROTHIAZIDE [Concomitant]
     Active Substance: HYDROCHLOROTHIAZIDE
     Indication: Product used for unknown indication
     Dosage: 12.5 MG, UNK
     Route: 065
  20. HYDROCHLOROTHIAZIDE [Concomitant]
     Active Substance: HYDROCHLOROTHIAZIDE
     Dosage: UNK
     Route: 065
  21. LIPITOR [Concomitant]
     Active Substance: ATORVASTATIN CALCIUM
     Indication: Product used for unknown indication
     Dosage: 80 MG, UNK
     Route: 065
  22. NIFEDIPINE [Concomitant]
     Active Substance: NIFEDIPINE
     Indication: Migraine prophylaxis
     Dosage: UNK
     Route: 065
  23. PANTOPRAZOLE [Concomitant]
     Active Substance: PANTOPRAZOLE
     Indication: Product used for unknown indication
     Dosage: UNK
     Route: 065
  24. PIZOTYLINE MALEATE [Concomitant]
     Active Substance: PIZOTYLINE MALEATE
     Indication: Migraine prophylaxis
     Dosage: 3 MG, [2 EVERY 1 DAYS]
     Route: 065
  25. PROZAC [Concomitant]
     Active Substance: FLUOXETINE HYDROCHLORIDE
     Indication: Migraine prophylaxis
     Dosage: UNK
     Route: 065
  26. RABEPRAZOLE [Concomitant]
     Active Substance: RABEPRAZOLE
     Indication: Product used for unknown indication
     Dosage: UNK
     Route: 065
  27. REMERON [Concomitant]
     Active Substance: MIRTAZAPINE
     Indication: Migraine prophylaxis
     Dosage: UNK
     Route: 065
  28. SERTRALINE HYDROCHLORIDE [Concomitant]
     Active Substance: SERTRALINE HYDROCHLORIDE
     Indication: Product used for unknown indication
     Dosage: 100 MG, [2 EVERY 1 DAYS]
     Route: 065
  29. VALPROATE SODIUM [Concomitant]
     Active Substance: VALPROATE SODIUM
     Indication: Migraine prophylaxis
     Dosage: 250 MG,  [2 EVERY 1 DAYS]
     Route: 065
  30. VALPROATE SODIUM [Concomitant]
     Active Substance: VALPROATE SODIUM
     Indication: Product used for unknown indication
  31. TOPAMAX [Concomitant]
     Active Substance: TOPIRAMATE
     Indication: Migraine prophylaxis
     Dosage: 100 MG, [2 EVERY 1 DAYS]
     Route: 065
  32. VITAMIN B12 [Concomitant]
     Active Substance: CYANOCOBALAMIN
     Indication: Product used for unknown indication
     Dosage: UNK
     Route: 065
  33. VITAMIN D [Concomitant]
     Active Substance: VITAMIN D NOS
     Indication: Product used for unknown indication
     Dosage: UNK
     Route: 065
  34. ZOPICLONE [Concomitant]
     Active Substance: ZOPICLONE
     Indication: Product used for unknown indication
     Dosage: 15 MG, UNK
     Route: 065
  35. ZOPICLONE [Concomitant]
     Active Substance: ZOPICLONE
     Dosage: 15 MILLIGRAM, 1 EVERY 1 DAYS
     Route: 065
  36. GABAPENTIN [Concomitant]
     Active Substance: GABAPENTIN
     Indication: Product used for unknown indication
     Dosage: UNK
     Route: 065
  37. RIBOFLAVIN [Concomitant]
     Active Substance: RIBOFLAVIN
     Indication: Product used for unknown indication
     Dosage: UNK
     Route: 065
  38. ERGOCALCIFEROL [Concomitant]
     Active Substance: ERGOCALCIFEROL
     Indication: Product used for unknown indication
     Dosage: UNK
     Route: 065

REACTIONS (14)
  - Anxiety [Unknown]
  - Drug ineffective [Unknown]
  - Blood pressure increased [Unknown]
  - Breast pain [Unknown]
  - Communication disorder [Unknown]
  - Drug ineffective for unapproved indication [Unknown]
  - Headache [Unknown]
  - Medication overuse headache [Unknown]
  - Pain [Unknown]
  - Paraesthesia [Unknown]
  - Rubber sensitivity [Unknown]
  - Stress [Unknown]
  - Off label use [Unknown]
  - Contraindicated product administered [Unknown]
